FAERS Safety Report 7352945-0 (Version None)
Quarter: 2011Q1

REPORT INFORMATION
  Report Type: 
  Country: None (occurrence: None)
  Receive Date: 20110315
  Receipt Date: 20110314
  Transmission Date: 20110831
  Serious: Yes (Death)
  Sender: FDA-Public Use
  Company Number: CL-ROCHE-765191

PATIENT
  Sex: Female
  Weight: 44 kg

DRUGS (1)
  1. CAPECITABINE [Suspect]
     Indication: BREAST CANCER
     Route: 048
     Dates: start: 20110120, end: 20110228

REACTIONS (1)
  - DISEASE PROGRESSION [None]
